FAERS Safety Report 10736335 (Version 1)
Quarter: 2015Q1

REPORT INFORMATION
  Report Type: Spontaneous
  Country: PL (occurrence: None)
  Receive Date: 20150122
  Receipt Date: 20150122
  Transmission Date: 20150721
  Serious: Yes (Death)
  Sender: FDA-Public Use
  Company Number: INT_00649_2015

PATIENT
  Age: 33 Year
  Sex: Female

DRUGS (4)
  1. ETOPOSIDE (ETOPOSIDE) [Suspect]
     Active Substance: ETOPOSIDE
     Indication: NON-HODGKIN^S LYMPHOMA
     Route: 042
  2. CISPLATIN (CISPLATIN) (HQ SPECIALTY) [Suspect]
     Active Substance: CISPLATIN
     Indication: NON-HODGKIN^S LYMPHOMA
     Route: 042
  3. METHYLPREDISOLONE [Suspect]
     Active Substance: METHYLPREDNISOLONE
     Indication: NON-HODGKIN^S LYMPHOMA
  4. CYTARABINE. [Suspect]
     Active Substance: CYTARABINE
     Indication: NON-HODGKIN^S LYMPHOMA
     Dosage: 3.16, 2 G/M2 DAY 5 INTRAVENOUS (NOT OTHERWISE SPECIFIED)
     Route: 042

REACTIONS (28)
  - Drug prescribing error [None]
  - Cardiac arrest [None]
  - Nausea [None]
  - Bone marrow disorder [None]
  - Inappropriate schedule of drug administration [None]
  - Prescribed overdose [None]
  - Toxicity to various agents [None]
  - Vomiting [None]
  - Thrombocytopenia [None]
  - Enterococcus test positive [None]
  - Circulatory collapse [None]
  - Haemorrhagic diathesis [None]
  - Stenotrophomonas test positive [None]
  - Deafness bilateral [None]
  - Agranulocytosis [None]
  - Swelling face [None]
  - Atrial fibrillation [None]
  - Sepsis [None]
  - Respiratory failure [None]
  - Cardiomyopathy [None]
  - Asthenia [None]
  - Electrolyte imbalance [None]
  - Klebsiella test positive [None]
  - Back pain [None]
  - Renal failure [None]
  - Hepatic failure [None]
  - Dialysis [None]
  - Supraventricular tachycardia [None]
